FAERS Safety Report 8622053-7 (Version None)
Quarter: 2012Q3

REPORT INFORMATION
  Report Type: 
  Country: None (occurrence: None)
  Receive Date: 20120823
  Receipt Date: 20120823
  Transmission Date: 20120928
  Serious: Yes (Life-Threatening, Hospitalization, Disabling)
  Sender: FDA-Public Use
  Company Number: None

PATIENT
  Age: 64 Year
  Sex: Male
  Weight: 97.5234 kg

DRUGS (1)
  1. AMLODIPINE - BENAZEPRIL 10 - 40 LU - E16 [Suspect]
     Indication: HYPERTENSION
     Dates: start: 20120215, end: 20120425

REACTIONS (6)
  - VERTIGO [None]
  - FATIGUE [None]
  - ATRIAL FIBRILLATION [None]
  - PRODUCT FORMULATION ISSUE [None]
  - PALPITATIONS [None]
  - PRODUCT SUBSTITUTION ISSUE [None]
